FAERS Safety Report 9796702 (Version 1)
Quarter: 2014Q1

REPORT INFORMATION
  Report Type: Spontaneous
  Country: GB (occurrence: GB)
  Receive Date: 20140103
  Receipt Date: 20140103
  Transmission Date: 20141002
  Serious: Yes (Other)
  Sender: FDA-Public Use
  Company Number: GB-WATSON-2013-23868

PATIENT
  Sex: Female

DRUGS (14)
  1. TACROLIMUS (UNKNOWN) [Suspect]
     Indication: LIVER TRANSPLANT
     Dosage: 0.5 MG, DAILY; ALTERNATING DOSE OF 1MG/0.5MG PER DAY INITIALLY
     Route: 048
     Dates: start: 20080702
  2. MYCOPHENOLATE MOFETIL (UNKNOWN) [Suspect]
     Indication: LIVER TRANSPLANT
     Dosage: 1 G, BID
     Route: 048
     Dates: start: 20080702
  3. VORICONAZOLE [Interacting]
     Indication: ASPERGILLUS INFECTION
     Dosage: 175 MG, BID
     Route: 048
     Dates: start: 20130925, end: 201310
  4. VORICONAZOLE [Interacting]
     Dosage: 175 MG, BID
     Route: 048
  5. VORICONAZOLE [Interacting]
     Dosage: 150 MG, BID
     Route: 048
     Dates: start: 201310
  6. RETINOL [Concomitant]
     Indication: CYSTIC FIBROSIS
     Dosage: UNK; VITAMIN A
     Route: 065
  7. COLECALCIFEROL [Concomitant]
     Indication: PRODUCT USED FOR UNKNOWN INDICATION
     Dosage: UNK
     Route: 065
  8. ASPIRIN [Concomitant]
     Indication: PRODUCT USED FOR UNKNOWN INDICATION
     Dosage: UNK
     Route: 065
  9. ACETYLCYSTEINE [Concomitant]
     Indication: PRODUCT USED FOR UNKNOWN INDICATION
     Dosage: UNK
     Route: 065
  10. CETIRIZINE [Concomitant]
     Indication: PRODUCT USED FOR UNKNOWN INDICATION
     Dosage: UNK
     Route: 065
  11. PANCREATIN [Concomitant]
     Indication: PRODUCT USED FOR UNKNOWN INDICATION
     Dosage: UNK
     Route: 065
  12. SALBUTAMOL [Concomitant]
     Indication: PRODUCT USED FOR UNKNOWN INDICATION
     Dosage: 100 ?G, UNKNOWN; INHALER CFC FREE
     Route: 055
  13. BUDESONIDE W/FORMOTEROL FUMARATE [Concomitant]
     Indication: PRODUCT USED FOR UNKNOWN INDICATION
     Dosage: UNK
     Route: 065
  14. INSULIN HUMAN [Concomitant]
     Indication: PRODUCT USED FOR UNKNOWN INDICATION
     Dosage: UNK
     Route: 065

REACTIONS (6)
  - Renal disorder [Unknown]
  - Skin exfoliation [Not Recovered/Not Resolved]
  - Alopecia [Not Recovered/Not Resolved]
  - Lip pain [Recovering/Resolving]
  - Stomatitis [Recovering/Resolving]
  - Potentiating drug interaction [Unknown]
